FAERS Safety Report 13087111 (Version 7)
Quarter: 2018Q4

REPORT INFORMATION
  Report Type: Report from Study
  Country: ES (occurrence: ES)
  Receive Date: 20170105
  Receipt Date: 20181112
  Transmission Date: 20190204
  Serious: Yes (Hospitalization)
  Sender: FDA-Public Use
  Company Number: ES-ROCHE-1873710

PATIENT
  Age: 67 Year
  Sex: Male
  Weight: 85 kg

DRUGS (21)
  1. DOXYCYCLINE. [Concomitant]
     Active Substance: DOXYCYCLINE
     Route: 048
     Dates: start: 20170201, end: 20170306
  2. PREDNISONE. [Concomitant]
     Active Substance: PREDNISONE
     Route: 048
     Dates: start: 20170301
  3. CELECREM [Concomitant]
     Indication: RASH
     Route: 061
     Dates: start: 20161221
  4. CELECREM [Concomitant]
     Route: 061
     Dates: start: 20170201, end: 20170315
  5. COBIMETINIB. [Suspect]
     Active Substance: COBIMETINIB
     Indication: COLORECTAL ADENOCARCINOMA
     Dosage: MOST RECENT DOSE PRIOR TO ONSET OF SEPSIS AND FACIAL SKIN RASH  20/DEC/2016?THE MOST RECENT DOSE OF
     Route: 048
     Dates: start: 20161212
  6. CEFUROXIME. [Concomitant]
     Active Substance: CEFUROXIME
     Indication: PYREXIA
     Route: 048
     Dates: start: 20161226, end: 20161228
  7. PRIMPERAN [Concomitant]
     Active Substance: METOCLOPRAMIDE HYDROCHLORIDE
     Indication: NAUSEA
     Route: 065
     Dates: start: 20170215, end: 20170306
  8. FORTASEC [Concomitant]
     Active Substance: LOPERAMIDE HYDROCHLORIDE
     Indication: DIARRHOEA
     Route: 048
     Dates: start: 20170123, end: 20170306
  9. ATARAX [Concomitant]
     Active Substance: HYDROXYZINE HYDROCHLORIDE
     Indication: RASH
     Route: 048
     Dates: start: 20170215, end: 20170306
  10. MYCOSTATIN [Concomitant]
     Active Substance: NYSTATIN
     Indication: MUCOSAL INFLAMMATION
     Route: 048
     Dates: start: 20170301, end: 20170306
  11. TAZOCEL [Concomitant]
     Active Substance: PIPERACILLIN SODIUM\TAZOBACTAM SODIUM
     Indication: SEPSIS
     Route: 042
     Dates: start: 20161226, end: 20170105
  12. ORFIDAL [Concomitant]
     Active Substance: LORAZEPAM
     Indication: INSOMNIA
     Route: 048
  13. RANITIDINE. [Concomitant]
     Active Substance: RANITIDINE
     Route: 048
     Dates: start: 20170409
  14. DOXYCYCLINE. [Concomitant]
     Active Substance: DOXYCYCLINE
     Indication: RASH
     Route: 048
     Dates: start: 20161221, end: 20170115
  15. SIMVASTATIN. [Concomitant]
     Active Substance: SIMVASTATIN
     Indication: HYPERCHOLESTEROLAEMIA
     Route: 048
  16. ATEZOLIZUMAB. [Suspect]
     Active Substance: ATEZOLIZUMAB
     Indication: COLORECTAL ADENOCARCINOMA
     Dosage: MOST RECENT DOSE PRIOR TO ONSET OF SEPSIS AND FACIAL SKIN RASH: 12/DEC/2016 AT 17:10?THE MOST RECENT
     Route: 042
     Dates: start: 20161212
  17. PREDNISONE. [Concomitant]
     Active Substance: PREDNISONE
     Indication: RASH
     Route: 048
     Dates: start: 20161221, end: 20170115
  18. CLOPIDOGREL [Concomitant]
     Active Substance: CLOPIDOGREL BISULFATE
     Indication: MYOCARDIAL ISCHAEMIA
     Route: 048
     Dates: start: 2013
  19. DILTIAZEM. [Concomitant]
     Active Substance: DILTIAZEM
     Indication: MYOCARDIAL ISCHAEMIA
     Route: 048
     Dates: start: 2013
  20. NEVANAC [Concomitant]
     Active Substance: NEPAFENAC
     Indication: EYE DISORDER
     Route: 047
     Dates: start: 20161223, end: 20170115
  21. METRONIDAZOLE. [Concomitant]
     Active Substance: METRONIDAZOLE
     Indication: SEPSIS
     Route: 048
     Dates: start: 20161226, end: 20161228

REACTIONS (2)
  - Rash [Recovered/Resolved with Sequelae]
  - Sepsis [Recovered/Resolved]

NARRATIVE: CASE EVENT DATE: 20161217
